FAERS Safety Report 7951573-3 (Version None)
Quarter: 2011Q4

REPORT INFORMATION
  Report Type: 
  Country: None (occurrence: None)
  Receive Date: 20111201
  Receipt Date: 20111117
  Transmission Date: 20120403
  Serious: Yes (Hospitalization, Other)
  Sender: FDA-Public Use
  Company Number: AU-ROCHE-1010535

PATIENT
  Sex: Female
  Weight: 112 kg

DRUGS (9)
  1. LEVOTHYROXINE SODIUM [Concomitant]
  2. ZYPREXA [Concomitant]
     Dates: start: 20101122
  3. ALBUTEROL SULFATE AUTOHALER [Concomitant]
     Dosage: 12 PUFF
  4. PEGINTERFERON ALFA-2A [Suspect]
     Indication: HEPATITIS C
     Route: 058
     Dates: start: 20100806
  5. COPEGUS [Suspect]
     Indication: HEPATITIS C
     Route: 048
     Dates: start: 20100806
  6. MIRTAZAPINE [Concomitant]
     Dates: start: 20110603
  7. FLUTICASONE PROPIONATE/SALMETEROL [Concomitant]
     Dates: start: 20110601
  8. SEROQUEL [Concomitant]
  9. NEXIUM [Concomitant]
     Dates: start: 20110114

REACTIONS (2)
  - CHRONIC OBSTRUCTIVE PULMONARY DISEASE [None]
  - RENAL IMPAIRMENT [None]
